FAERS Safety Report 9898412 (Version 1)
Quarter: 2014Q1

REPORT INFORMATION
  Report Type: Spontaneous
  Country: DK (occurrence: DK)
  Receive Date: 20140214
  Receipt Date: 20140214
  Transmission Date: 20141002
  Serious: Yes (Death, Hospitalization, Other)
  Sender: FDA-Public Use
  Company Number: DK-PFIZER INC-2014039201

PATIENT
  Age: 39 Year
  Sex: Female
  Weight: 59 kg

DRUGS (1)
  1. DOSTINEX [Suspect]
     Indication: LACTATION INHIBITION THERAPY
     Dosage: STRENGTH: 0,5 MG (SINGLE DOSE OF 1 MG)
     Route: 048
     Dates: start: 20130121, end: 20130121

REACTIONS (4)
  - Pulmonary fibrosis [Fatal]
  - Hypoxia [Fatal]
  - Skin fibrosis [Fatal]
  - Dyspnoea [Unknown]
